FAERS Safety Report 19418032 (Version 2)
Quarter: 2021Q3

REPORT INFORMATION
  Report Type: Spontaneous
  Country: CH (occurrence: CH)
  Receive Date: 20210615
  Receipt Date: 20210802
  Transmission Date: 20211014
  Serious: Yes (Hospitalization, Other)
  Sender: FDA-Public Use
  Company Number: CH-COLLEGIUM PHARMACEUTICAL, INC.-2021CGM00702

PATIENT
  Age: 84 Year
  Sex: Female

DRUGS (11)
  1. TAPENTADOL [Suspect]
     Active Substance: TAPENTADOL
     Indication: BONE PAIN
     Dosage: 25 MG, 1X/DAY
     Route: 048
     Dates: start: 201908
  2. METHOTREXATE. [Concomitant]
     Active Substance: METHOTREXATE
  3. METAMIZOLE [Concomitant]
     Active Substance: METAMIZOLE
  4. PANTOPRAZOLE [Concomitant]
     Active Substance: PANTOPRAZOLE
  5. PARACETAMOL [Concomitant]
     Active Substance: ACETAMINOPHEN
  6. MORPHINE [Concomitant]
     Active Substance: MORPHINE
  7. CALCIMAGON D3 [Concomitant]
     Active Substance: CALCIUM\CHOLECALCIFEROL
  8. TAPENTADOL [Suspect]
     Active Substance: TAPENTADOL
     Dosage: 25 MG, 2X/DAY
     Route: 048
  9. RIVAROXABAN [Concomitant]
     Active Substance: RIVAROXABAN
  10. NALOXONE; OXYCODONE [Concomitant]
  11. TAPENTADOL [Suspect]
     Active Substance: TAPENTADOL
     Dosage: 300 MG, 1X/DAY
     Route: 048
     Dates: start: 202002, end: 202009

REACTIONS (3)
  - Faecaloma [Recovered/Resolved]
  - Urinary retention [Recovered/Resolved]
  - Acute respiratory failure [Recovered/Resolved]

NARRATIVE: CASE EVENT DATE: 202009
